FAERS Safety Report 9999934 (Version 2)
Quarter: 2014Q1

REPORT INFORMATION
  Report Type: Spontaneous
  Country: US (occurrence: US)
  Receive Date: 20140312
  Receipt Date: 20140312
  Transmission Date: 20141002
  Serious: No
  Sender: FDA-Public Use
  Company Number: US-GILEAD-2012-0058077

PATIENT
  Age: 45 Year
  Sex: Male

DRUGS (3)
  1. LETAIRIS [Suspect]
     Indication: PULMONARY HYPERTENSION
     Dosage: 10 MG, UNK
     Route: 048
     Dates: start: 20091223
  2. LETAIRIS [Suspect]
     Indication: HEART DISEASE CONGENITAL
  3. ADCIRCA [Concomitant]

REACTIONS (7)
  - Ascites [Unknown]
  - Abdominal distension [Unknown]
  - Dizziness [Unknown]
  - Exercise tolerance decreased [Unknown]
  - Fatigue [Unknown]
  - Dyspnoea [Unknown]
  - Dyspnoea [Unknown]
